FAERS Safety Report 7260910-7 (Version None)
Quarter: 2011Q1

REPORT INFORMATION
  Report Type: 
  Country: None (occurrence: None)
  Receive Date: 20110130
  Receipt Date: 20101221
  Transmission Date: 20110831
  Serious: No
  Sender: FDA-Public Use
  Company Number: US-ABBOTT-10P-163-0693834-00

PATIENT
  Age: 29 Year
  Sex: Male

DRUGS (2)
  1. ZOLOFT [Concomitant]
     Indication: PRODUCT USED FOR UNKNOWN INDICATION
  2. HUMIRA [Suspect]
     Indication: ENTERITIS
     Dates: start: 20100311

REACTIONS (1)
  - DEPRESSION [None]
